FAERS Safety Report 4286774-1 (Version None)
Quarter: 2004Q1

REPORT INFORMATION
  Report Type: 
  Country: None (occurrence: None)
  Receive Date: 20040204
  Receipt Date: 20040122
  Transmission Date: 20041129
  Serious: Yes (Hospitalization)
  Sender: FDA-Public Use
  Company Number: 2003007927

PATIENT
  Age: 28 Year
  Sex: Female
  Weight: 56.6996 kg

DRUGS (3)
  1. GEODON [Suspect]
     Indication: SCHIZOPHRENIA
     Dosage: 100 MG (BID), ORAL
     Route: 048
     Dates: start: 20030207, end: 20030220
  2. RISPERIDONE [Concomitant]
  3. CLONAZEPAM [Concomitant]

REACTIONS (6)
  - AGGRESSION [None]
  - AGITATION [None]
  - DYSPHONIA [None]
  - IRRITABILITY [None]
  - MANIA [None]
  - PRESSURE OF SPEECH [None]
